FAERS Safety Report 8389445-5 (Version None)
Quarter: 2012Q2

REPORT INFORMATION
  Report Type: 
  Country: None (occurrence: None)
  Receive Date: 20120528
  Receipt Date: 20120515
  Transmission Date: 20120825
  Serious: Yes (Hospitalization)
  Sender: FDA-Public Use
  Company Number: JP-ELI_LILLY_AND_COMPANY-JP201205002356

PATIENT
  Age: 83 Year
  Sex: Female

DRUGS (4)
  1. EVISTA [Suspect]
     Indication: OSTEOPOROSIS
     Dosage: 60 MG, QD
     Route: 048
     Dates: start: 20100301, end: 20120201
  2. NORVASC [Concomitant]
     Indication: HYPERTENSION
  3. ASPARA-CA [Concomitant]
     Indication: OSTEOPOROSIS
     Dosage: 200 MG, UNK
     Route: 048
  4. SITAGLIPTIN PHOSPHATE [Concomitant]

REACTIONS (3)
  - TRANSAMINASES INCREASED [None]
  - GAMMA-GLUTAMYLTRANSFERASE INCREASED [None]
  - JAUNDICE CHOLESTATIC [None]
